FAERS Safety Report 4692985-3 (Version None)
Quarter: 2005Q2

REPORT INFORMATION
  Report Type: 
  Country: None (occurrence: None)
  Receive Date: 20050615
  Receipt Date: 20050603
  Transmission Date: 20051028
  Serious: Yes (Hospitalization, Other)
  Sender: FDA-Public Use
  Company Number: USA-2002-0000701

PATIENT
  Age: 46 Year
  Sex: Male

DRUGS (6)
  1. OXYCONTIN [Suspect]
     Indication: PAIN
     Dosage: 80 MG BID ORAL
     Route: 048
     Dates: start: 19990101, end: 20010101
  2. OXYIR (OXYCODONE HYDROCHLORIDE) CR TABLET [Concomitant]
  3. SOMA [Concomitant]
  4. ANAPROX [Concomitant]
  5. AMBIEN [Concomitant]
  6. ELAVIL [Concomitant]

REACTIONS (18)
  - ANXIETY [None]
  - BRONCHITIS [None]
  - DRUG ABUSER [None]
  - DRUG DEPENDENCE [None]
  - DRUG WITHDRAWAL SYNDROME [None]
  - FATIGUE [None]
  - HYPOAESTHESIA [None]
  - INSOMNIA [None]
  - MALAISE [None]
  - MYALGIA [None]
  - PAIN [None]
  - PAIN IN EXTREMITY [None]
  - PARAESTHESIA [None]
  - SELF-MEDICATION [None]
  - SOMNOLENCE [None]
  - SUICIDAL IDEATION [None]
  - TINEA CAPITIS [None]
  - UPPER RESPIRATORY TRACT INFECTION [None]
